FAERS Safety Report 11491721 (Version 1)
Quarter: 2015Q3

REPORT INFORMATION
  Report Type: Spontaneous
  Country: CA (occurrence: CA)
  Receive Date: 20150910
  Receipt Date: 20150910
  Transmission Date: 20151125
  Serious: Yes (Hospitalization, Other)
  Sender: FDA-Public Use
  Company Number: CA-GLAXOSMITHKLINE-CA2015GSK129526

PATIENT
  Age: 39 Year
  Sex: Female

DRUGS (2)
  1. CEFTIN [Suspect]
     Active Substance: CEFUROXIME AXETIL
     Indication: PRODUCT USED FOR UNKNOWN INDICATION
     Dosage: UNK
     Route: 065
  2. ERBITUX [Suspect]
     Active Substance: CETUXIMAB
     Indication: SQUAMOUS CELL CARCINOMA
     Dosage: 430 MG, WE
     Route: 042

REACTIONS (12)
  - Dyspnoea [Unknown]
  - Swelling face [Unknown]
  - Off label use [Unknown]
  - Productive cough [Unknown]
  - Rash papular [Unknown]
  - Headache [Unknown]
  - Heart rate increased [Unknown]
  - Vomiting [Unknown]
  - Laryngeal oedema [Unknown]
  - Eyelid oedema [Unknown]
  - Insomnia [Unknown]
  - Vocal cord inflammation [Unknown]
